FAERS Safety Report 12043902 (Version 1)
Quarter: 2016Q1

REPORT INFORMATION
  Report Type: Spontaneous
  Country: US (occurrence: US)
  Receive Date: 20160208
  Receipt Date: 20160208
  Transmission Date: 20160526
  Serious: No
  Sender: FDA-Public Use
  Company Number: US-WATSON-2015-21615

PATIENT
  Sex: Female

DRUGS (2)
  1. CANASA [Suspect]
     Active Substance: MESALAMINE
     Indication: HAEMORRHOIDS
  2. CANASA [Suspect]
     Active Substance: MESALAMINE
     Indication: PROCTITIS ULCERATIVE
     Dosage: AS NEEDED EVERY 3-4 NIGHTS
     Route: 054

REACTIONS (2)
  - Drug ineffective [Unknown]
  - Product use issue [Unknown]
